FAERS Safety Report 7609489-8 (Version None)
Quarter: 2011Q3

REPORT INFORMATION
  Report Type: 
  Country: None (occurrence: None)
  Receive Date: 20110714
  Receipt Date: 20110705
  Transmission Date: 20111222
  Serious: Yes (Other)
  Sender: FDA-Public Use
  Company Number: PHHY2011MY60679

PATIENT
  Age: 30 Year
  Sex: Male

DRUGS (6)
  1. PYRIDOXINE HCL [Concomitant]
     Dosage: 10 MG/DAY
  2. ISONIAZID [Concomitant]
     Dosage: 300 MG/DAY
  3. DEXAMETHASONE [Suspect]
  4. PYRAZINAMIDE [Concomitant]
     Dosage: 2 G/DAY
  5. RIFAMPICIN [Interacting]
     Dosage: 600 MG/DAY
  6. ETHAMBUTOL HYDROCHLORIDE [Concomitant]
     Dosage: 1.2 G/DAY

REACTIONS (2)
  - DRUG INTERACTION [None]
  - BLOOD CORTISOL INCREASED [None]
